FAERS Safety Report 4318710-3 (Version None)
Quarter: 2004Q1

REPORT INFORMATION
  Report Type: 
  Country: None (occurrence: None)
  Receive Date: 20040315
  Receipt Date: 20040305
  Transmission Date: 20041129
  Serious: Yes (Death, Life-Threatening)
  Sender: FDA-Public Use
  Company Number: 2004AP01433

PATIENT
  Age: 87 Year
  Sex: Female

DRUGS (1)
  1. IRESSA [Suspect]
     Dosage: 250 MG DAILY PO
     Route: 048
     Dates: start: 20030808, end: 20030826

REACTIONS (2)
  - HYPOXIA [None]
  - LYMPHANGIOSIS CARCINOMATOSA [None]
